FAERS Safety Report 8324810-3 (Version None)
Quarter: 2012Q2

REPORT INFORMATION
  Report Type: 
  Country: None (occurrence: None)
  Receive Date: 20120501
  Receipt Date: 20120423
  Transmission Date: 20120825
  Serious: Yes (Other)
  Sender: FDA-Public Use
  Company Number: US-SP-2012-01613

PATIENT
  Sex: Male

DRUGS (2)
  1. DAPTACEL [Suspect]
     Indication: IMMUNISATION
     Route: 030
     Dates: start: 20120206, end: 20120206
  2. TUBERSOL [Suspect]
     Indication: TUBERCULIN TEST
     Route: 058
     Dates: start: 20120206, end: 20120206

REACTIONS (3)
  - STARING [None]
  - PETIT MAL EPILEPSY [None]
  - UNRESPONSIVE TO STIMULI [None]
